FAERS Safety Report 7030174-8 (Version None)
Quarter: 2010Q4

REPORT INFORMATION
  Report Type: 
  Country: None (occurrence: None)
  Receive Date: 20101006
  Receipt Date: 20100923
  Transmission Date: 20110411
  Serious: Yes (Hospitalization, Other)
  Sender: FDA-Public Use
  Company Number: US-ELI_LILLY_AND_COMPANY-US201009004177

PATIENT
  Sex: Female

DRUGS (3)
  1. FORTEO [Suspect]
     Indication: OSTEOPOROSIS
     Dosage: 20 UG, DAILY (1/D)
     Route: 058
  2. VITAMINS [Concomitant]
  3. VITAMIN D [Concomitant]

REACTIONS (12)
  - CONTUSION [None]
  - DEPRESSION [None]
  - DRUG DOSE OMISSION [None]
  - FALL [None]
  - HEAD INJURY [None]
  - MEMORY IMPAIRMENT [None]
  - PAIN [None]
  - RIB FRACTURE [None]
  - SKIN LACERATION [None]
  - SPINAL FRACTURE [None]
  - STRESS [None]
  - VISUAL ACUITY REDUCED [None]
